FAERS Safety Report 9423103 (Version 1)
Quarter: 2013Q3

REPORT INFORMATION
  Report Type: Spontaneous
  Country: DE (occurrence: DE)
  Receive Date: 20130726
  Receipt Date: 20130726
  Transmission Date: 20140515
  Serious: Yes (Other)
  Sender: FDA-Public Use
  Company Number: DE-JNJFOC-20130713702

PATIENT
  Age: 34 Year
  Sex: Male
  Weight: 83 kg

DRUGS (8)
  1. XARELTO [Suspect]
     Indication: CEREBROVASCULAR ACCIDENT PROPHYLAXIS
     Route: 048
     Dates: start: 20130518
  2. XARELTO [Suspect]
     Indication: ATRIAL FIBRILLATION
     Route: 048
     Dates: start: 20130518
  3. XARELTO [Suspect]
     Indication: VENTRICULAR TACHYCARDIA
     Route: 048
     Dates: start: 20130518
  4. XARELTO [Suspect]
     Indication: CARDIAC ABLATION
     Route: 048
     Dates: start: 20130518
  5. PANTOPRAZOLE [Concomitant]
     Route: 065
  6. EPLERENONE [Concomitant]
     Route: 065
  7. RAMIPRIL [Concomitant]
     Route: 065
  8. TORASEMID [Concomitant]
     Route: 065

REACTIONS (3)
  - Amnesia [Recovered/Resolved]
  - Dyskinesia [Recovered/Resolved]
  - Disturbance in attention [Recovered/Resolved]
